FAERS Safety Report 16690689 (Version 1)
Quarter: 2019Q3

REPORT INFORMATION
  Report Type: Spontaneous
  Country: GB (occurrence: GB)
  Receive Date: 20190811
  Receipt Date: 20190811
  Transmission Date: 20191004
  Serious: Yes (Other)
  Sender: FDA-Public Use
  Company Number: PHHY2019GB182906

PATIENT
  Sex: Female

DRUGS (10)
  1. QUINORIC [Concomitant]
     Active Substance: HYDROXYCHLOROQUINE SULFATE
     Indication: PRODUCT USED FOR UNKNOWN INDICATION
     Dosage: UNK
     Route: 065
  2. HYDROXYCHLOROQUINE [Concomitant]
     Active Substance: HYDROXYCHLOROQUINE
     Indication: ARTHRITIS
     Dosage: 400 MG, QD
     Route: 048
     Dates: start: 20100426
  3. ETORICOXIB. [Concomitant]
     Active Substance: ETORICOXIB
     Indication: ARTHRITIS
     Dosage: 60 MG, QD
     Route: 048
  4. SULFASALAZINE. [Suspect]
     Active Substance: SULFASALAZINE
     Indication: ARTHRITIS
     Dosage: 3 G, QD
     Route: 048
     Dates: start: 2004
  5. HYDROXYCHLOROQUINE [Concomitant]
     Active Substance: HYDROXYCHLOROQUINE
     Dosage: 200 MG, QD
     Route: 048
     Dates: start: 2010
  6. FOLIC ACID. [Concomitant]
     Active Substance: FOLIC ACID
     Indication: PRODUCT USED FOR UNKNOWN INDICATION
     Dosage: 10 MG, QW
     Route: 048
     Dates: start: 2014
  7. ETORICOXIB. [Concomitant]
     Active Substance: ETORICOXIB
     Indication: ANALGESIC THERAPY
  8. METHOTREXATE. [Suspect]
     Active Substance: METHOTREXATE
     Indication: ARTHRITIS
     Dosage: 5 MG, QW
     Route: 048
     Dates: start: 2014
  9. ABATACEPT [Suspect]
     Active Substance: ABATACEPT
     Indication: ARTHRITIS
     Dosage: 125 MG, QW
     Route: 058
     Dates: start: 20141006
  10. ARCOXIA [Concomitant]
     Active Substance: ETORICOXIB
     Indication: ARTHRITIS
     Dosage: 60 MG, QD
     Route: 048

REACTIONS (5)
  - Folliculitis [Recovered/Resolved]
  - Upper respiratory tract infection [Unknown]
  - Infection [Unknown]
  - Lower respiratory tract infection [Recovered/Resolved]
  - Ingrown hair [Unknown]

NARRATIVE: CASE EVENT DATE: 20190329
